FAERS Safety Report 6277186-X (Version None)
Quarter: 2009Q3

REPORT INFORMATION
  Report Type: 
  Country: None (occurrence: None)
  Receive Date: 20090722
  Receipt Date: 20090204
  Transmission Date: 20100115
  Serious: Yes (Other)
  Sender: FDA-Public Use
  Company Number: US-BRISTOL-MYERS SQUIBB COMPANY-14495071

PATIENT
  Age: 66 Year
  Sex: Female

DRUGS (7)
  1. COUMADIN [Suspect]
     Indication: PULMONARY EMBOLISM
     Dates: start: 20081201
  2. COUMADIN [Suspect]
     Indication: THROMBOSIS
     Dates: start: 20081201
  3. LOVENOX [Suspect]
     Indication: PULMONARY EMBOLISM
     Dates: start: 20081101, end: 20081201
  4. LOVENOX [Suspect]
     Indication: THROMBOSIS
     Dates: start: 20081101, end: 20081201
  5. OXALIPLATIN [Concomitant]
     Indication: COLORECTAL CANCER
  6. FLUOROURACIL [Concomitant]
     Indication: COLORECTAL CANCER
  7. LEUCOVORIN CALCIUM [Concomitant]
     Indication: COLORECTAL CANCER

REACTIONS (3)
  - ABDOMINAL PAIN UPPER [None]
  - EPISTAXIS [None]
  - RECTAL HAEMORRHAGE [None]
